FAERS Safety Report 11122145 (Version 2)
Quarter: 2015Q2

REPORT INFORMATION
  Report Type: Spontaneous
  Country: GB (occurrence: GB)
  Receive Date: 20150519
  Receipt Date: 20150521
  Transmission Date: 20150821
  Serious: Yes (Hospitalization, Other)
  Sender: FDA-Public Use
  Company Number: GB-PFIZER INC-2015165151

PATIENT
  Age: 47 Year
  Sex: Male
  Weight: 69.5 kg

DRUGS (5)
  1. EPIRUBICIN HCL [Suspect]
     Active Substance: EPIRUBICIN HYDROCHLORIDE
     Indication: GASTROOESOPHAGEAL CANCER
     Dosage: 96 MG, CYCLIC
     Route: 042
     Dates: start: 20101223
  2. XELODA [Suspect]
     Active Substance: CAPECITABINE
     Indication: GASTROOESOPHAGEAL CANCER
     Dosage: 1000 MG, CYCLIC
     Route: 048
     Dates: start: 20101223, end: 20110523
  3. XELODA [Suspect]
     Active Substance: CAPECITABINE
     Dosage: UNK (COMPLETELY STOPPED)
     Route: 048
     Dates: start: 20110524, end: 20110525
  4. CISPLATIN. [Suspect]
     Active Substance: CISPLATIN
     Indication: GASTROOESOPHAGEAL CANCER
     Dosage: 112 MG, CYCLIC
     Route: 042
     Dates: start: 20101223
  5. AVASTIN [Suspect]
     Active Substance: BEVACIZUMAB
     Indication: GASTROOESOPHAGEAL CANCER
     Dosage: 512.5 MG, CYCLIC
     Route: 042
     Dates: start: 20101223

REACTIONS (1)
  - Chest pain [Recovered/Resolved]

NARRATIVE: CASE EVENT DATE: 20110522
